FAERS Safety Report 26047251 (Version 1)
Quarter: 2025Q4

REPORT INFORMATION
  Report Type: Spontaneous
  Country: CN (occurrence: CN)
  Receive Date: 20251114
  Receipt Date: 20251114
  Transmission Date: 20260118
  Serious: Yes (Other)
  Sender: ABBVIE
  Company Number: CN-ABBOTT-2025A-1404093

PATIENT
  Age: 47 Year
  Sex: Male
  Weight: 78 kg

DRUGS (1)
  1. FENOFIBRATE [Suspect]
     Active Substance: FENOFIBRATE
     Indication: Hypercholesterolaemia
     Route: 048
     Dates: start: 20251023, end: 20251023

REACTIONS (3)
  - Angular cheilitis [Recovered/Resolved]
  - Rash pruritic [Recovered/Resolved]
  - Circumoral swelling [Recovered/Resolved]

NARRATIVE: CASE EVENT DATE: 20251024
